FAERS Safety Report 19377601 (Version 2)
Quarter: 2021Q2

REPORT INFORMATION
  Report Type: Report from Study
  Country: US (occurrence: US)
  Receive Date: 20210604
  Receipt Date: 20210629
  Transmission Date: 20210717
  Serious: Yes (Life-Threatening, Hospitalization)
  Sender: FDA-Public Use
  Company Number: US-GILEAD-2021-0529894

PATIENT
  Age: 18 Year
  Sex: Male
  Weight: 54.8 kg

DRUGS (7)
  1. KEPPRA [Concomitant]
     Active Substance: LEVETIRACETAM
     Dosage: 500 MG, BID
     Dates: start: 20210527
  2. KTE?X19 [Suspect]
     Active Substance: BREXUCABTAGENE AUTOLEUCEL
     Indication: ACUTE LYMPHOCYTIC LEUKAEMIA
     Dosage: 1 DOSAGE FORM, ONCE; 40 ML
     Route: 042
     Dates: start: 20210428, end: 20210428
  3. FLUDARABINE [Suspect]
     Active Substance: FLUDARABINE PHOSPHATE
     Indication: BONE MARROW CONDITIONING REGIMEN
     Dosage: UNK
     Route: 042
     Dates: start: 20210424
  4. CYCLOPHOSPHAMIDE. [Suspect]
     Active Substance: CYCLOPHOSPHAMIDE
     Indication: BONE MARROW CONDITIONING REGIMEN
     Dosage: UNK
     Route: 042
     Dates: start: 20210424
  5. KEPPRA [Concomitant]
     Active Substance: LEVETIRACETAM
     Indication: SEIZURE PROPHYLAXIS
     Dosage: 500 MG, BID
     Dates: start: 202105
  6. KEPPRA [Concomitant]
     Active Substance: LEVETIRACETAM
     Dosage: 2 G, BID
     Route: 042
     Dates: start: 202105
  7. LASIX [Concomitant]
     Active Substance: FUROSEMIDE

REACTIONS (4)
  - Encephalopathy [Recovered/Resolved]
  - Cytokine release syndrome [Recovered/Resolved]
  - Brain oedema [Recovered/Resolved]
  - Respiratory failure [Recovered/Resolved]

NARRATIVE: CASE EVENT DATE: 20210504
